FAERS Safety Report 5671435-4 (Version None)
Quarter: 2008Q1

REPORT INFORMATION
  Report Type: 
  Country: None (occurrence: None)
  Receive Date: 20080318
  Receipt Date: 20080310
  Transmission Date: 20080703
  Serious: Yes (Hospitalization)
  Sender: FDA-Public Use
  Company Number: US-GENENTECH-257472

PATIENT
  Age: 61 Year
  Sex: Male
  Weight: 65.9 kg

DRUGS (16)
  1. BEVACIZUMAB [Suspect]
     Indication: NON-SMALL CELL LUNG CANCER
     Dosage: 15 MG/KG, Q21D
     Route: 042
     Dates: start: 20070517
  2. CETUXIMAB [Suspect]
     Indication: NON-SMALL CELL LUNG CANCER
     Dosage: 400 MG/M2, SINGLE
     Route: 042
     Dates: start: 20070517
  3. CETUXIMAB [Suspect]
     Dosage: 250 MG/M2, 1/WEEK
     Route: 042
  4. PACLITAXEL [Suspect]
     Indication: NON-SMALL CELL LUNG CANCER
     Dosage: 200 MG/M2, Q21D
     Route: 042
     Dates: start: 20070517
  5. CARBOPLATIN [Suspect]
     Indication: NON-SMALL CELL LUNG CANCER
     Dosage: 6 AUC, Q21D
     Route: 042
     Dates: start: 20070517
  6. PROPOXYPHENE HCL AND ACETAMINOPHEN [Concomitant]
     Indication: DRUG USE FOR UNKNOWN INDICATION
  7. MEGACE [Concomitant]
     Indication: DRUG USE FOR UNKNOWN INDICATION
  8. LACTULOSE [Concomitant]
     Indication: DRUG USE FOR UNKNOWN INDICATION
  9. SENNA [Concomitant]
     Indication: DRUG USE FOR UNKNOWN INDICATION
  10. ZOLPIDEM TARTRATE [Concomitant]
     Indication: DRUG USE FOR UNKNOWN INDICATION
  11. LORAZEPAM [Concomitant]
     Indication: DRUG USE FOR UNKNOWN INDICATION
  12. PREDNISONE [Concomitant]
     Indication: DRUG USE FOR UNKNOWN INDICATION
     Route: 047
  13. FENTANYL [Concomitant]
     Indication: DRUG USE FOR UNKNOWN INDICATION
  14. MS CONTIN [Concomitant]
     Indication: DRUG USE FOR UNKNOWN INDICATION
  15. ADVAIR DISKUS 100/50 [Concomitant]
     Indication: DRUG USE FOR UNKNOWN INDICATION
  16. RED BLOOD CELLS [Concomitant]
     Indication: DRUG USE FOR UNKNOWN INDICATION
     Dosage: 2 UNIT, UNK

REACTIONS (1)
  - LEUKOCYTOCLASTIC VASCULITIS [None]
